FAERS Safety Report 4888478-0 (Version None)
Quarter: 2005Q4

REPORT INFORMATION
  Report Type: 
  Country: None (occurrence: None)
  Receive Date: 20051215
  Receipt Date: 20050720
  Transmission Date: 20060501
  Serious: Yes (Other)
  Sender: FDA-Public Use
  Company Number: 2005105007

PATIENT
  Age: 60 Year
  Sex: Male

DRUGS (2)
  1. BEXTRA [Suspect]
     Indication: ARTHROPATHY
     Route: 065
  2. ANTIHYPERTENSIVES (ANTIHYPERTENSIVES) [Concomitant]

REACTIONS (4)
  - DIABETES MELLITUS [None]
  - HYPERTENSION [None]
  - MALAISE [None]
  - RENAL FAILURE [None]
